FAERS Safety Report 17575882 (Version 1)
Quarter: 2020Q1

REPORT INFORMATION
  Report Type: Spontaneous
  Country: US (occurrence: US)
  Receive Date: 20200324
  Receipt Date: 20200324
  Transmission Date: 20200409
  Serious: Yes (Hospitalization, Other)
  Sender: FDA-Public Use
  Company Number: US-STRIDES ARCOLAB LIMITED-2020SP003869

PATIENT
  Age: 41 Year
  Sex: Male

DRUGS (10)
  1. AMOXICILLIN W/CLAVULANIC ACID [Concomitant]
     Active Substance: AMOXICILLIN\CLAVULANIC ACID
     Indication: PRODUCT USED FOR UNKNOWN INDICATION
     Dosage: UNK
     Route: 065
  2. MYCOPHENOLIC ACID. [Concomitant]
     Active Substance: MYCOPHENOLIC ACID
     Indication: LIVER TRANSPLANT
  3. LAMOTRIGINE. [Concomitant]
     Active Substance: LAMOTRIGINE
     Indication: AGITATION
  4. TACROLIMUS. [Suspect]
     Active Substance: TACROLIMUS
     Indication: IMMUNOSUPPRESSANT DRUG THERAPY
     Dosage: 1 MILLIGRAM, EVERY 12 HRS
     Route: 065
  5. TACROLIMUS. [Interacting]
     Active Substance: TACROLIMUS
     Indication: LIVER TRANSPLANT
  6. LAMOTRIGINE. [Concomitant]
     Active Substance: LAMOTRIGINE
     Indication: DELUSION OF GRANDEUR
     Dosage: 100 MILLIGRAM, UNK
     Route: 065
  7. MYCOPHENOLIC ACID. [Concomitant]
     Active Substance: MYCOPHENOLIC ACID
     Indication: IMMUNOSUPPRESSANT DRUG THERAPY
     Dosage: 360 MILLIGRAM, EVERY 12 HRS
     Route: 065
  8. ESCITALOPRAM [Concomitant]
     Active Substance: ESCITALOPRAM OXALATE
     Indication: PRODUCT USED FOR UNKNOWN INDICATION
     Dosage: 20 MILLIGRAM, UNK
     Route: 065
  9. ALPRAZOLAM. [Concomitant]
     Active Substance: ALPRAZOLAM
     Indication: PRODUCT USED FOR UNKNOWN INDICATION
     Dosage: 1 MILLIGRAM, EVERY 12 HRS, AS NEEDED
     Route: 065
  10. CIPROFLOXACIN. [Interacting]
     Active Substance: CIPROFLOXACIN
     Indication: SINUSITIS
     Dosage: UNK
     Route: 065

REACTIONS (15)
  - Cerebral atrophy [Recovered/Resolved]
  - Thinking abnormal [Recovered/Resolved]
  - Staring [Recovered/Resolved]
  - Delusion of grandeur [Recovered/Resolved]
  - Condition aggravated [Recovered/Resolved]
  - Catatonia [Recovered/Resolved]
  - Immobile [Recovered/Resolved]
  - Tachycardia [Recovered/Resolved]
  - Mania [Recovered/Resolved]
  - Muscle rigidity [Recovered/Resolved]
  - Drug interaction [Unknown]
  - Delirium [Recovered/Resolved]
  - Drug level increased [Unknown]
  - Social avoidant behaviour [Recovered/Resolved]
  - Agitation [Recovered/Resolved]
